FAERS Safety Report 19101624 (Version 2)
Quarter: 2021Q2

REPORT INFORMATION
  Report Type: Report from Study
  Country: None (occurrence: FR)
  Receive Date: 20210407
  Receipt Date: 20210415
  Transmission Date: 20210717
  Serious: Yes (Other)
  Sender: FDA-Public Use
  Company Number: FR-ABBVIE-21K-056-3844946-00

PATIENT
  Age: 63 Year
  Sex: Male

DRUGS (2)
  1. DUODOPA [Suspect]
     Active Substance: CARBIDOPA\LEVODOPA
  2. DUODOPA [Suspect]
     Active Substance: CARBIDOPA\LEVODOPA
     Indication: PARKINSON^S DISEASE
     Route: 050
     Dates: start: 202011

REACTIONS (8)
  - Asthenia [Unknown]
  - Irritability [Not Recovered/Not Resolved]
  - COVID-19 [Recovering/Resolving]
  - Cough [Unknown]
  - Freezing phenomenon [Not Recovered/Not Resolved]
  - Mobility decreased [Not Recovered/Not Resolved]
  - Exposure to SARS-CoV-2 [Unknown]
  - Hyperthermia [Unknown]

NARRATIVE: CASE EVENT DATE: 2021
